FAERS Safety Report 5670578-9 (Version None)
Quarter: 2008Q1

REPORT INFORMATION
  Report Type: 
  Country: None (occurrence: None)
  Receive Date: 20080318
  Receipt Date: 20080303
  Transmission Date: 20080703
  Serious: Yes (Other)
  Sender: FDA-Public Use
  Company Number: SE-RANBAXY-2008US-13434

PATIENT

DRUGS (3)
  1. ISOPTIN SR [Suspect]
     Indication: MIGRAINE
     Dosage: UNK, UNK
     Route: 048
     Dates: start: 20070826, end: 20070904
  2. TRYPTIZOL [Concomitant]
     Indication: DRUG USE FOR UNKNOWN INDICATION
     Dosage: UNK, UNK
     Route: 065
  3. TRYPTIZOL [Concomitant]
     Dosage: UNK
     Route: 065
     Dates: start: 20071001

REACTIONS (8)
  - BLISTER [None]
  - JOINT SWELLING [None]
  - PETECHIAE [None]
  - PRURITUS [None]
  - PYREXIA [None]
  - RASH [None]
  - SKIN EXFOLIATION [None]
  - STEVENS-JOHNSON SYNDROME [None]
